FAERS Safety Report 8610627-9 (Version None)
Quarter: 2012Q3

REPORT INFORMATION
  Report Type: 
  Country: None (occurrence: None)
  Receive Date: 20120808
  Receipt Date: 20120726
  Transmission Date: 20120928
  Serious: Yes (Hospitalization)
  Sender: FDA-Public Use
  Company Number: JPI-P-023288

PATIENT
  Age: 48 Year
  Sex: Female
  Weight: 83.4619 kg

DRUGS (11)
  1. POTASSIUM [Concomitant]
  2. CARVEDILOL [Concomitant]
  3. SIMVASTATIN [Concomitant]
  4. LEVOTHYROXINE SODIUM [Concomitant]
  5. MILNACIPRAN HYDROCHLORIDE [Concomitant]
  6. XYREM [Suspect]
     Indication: SLEEP DISORDER
     Dosage: 4.5 GM (2.25 GM, 2 IN 1 D), ORAL; 6 GM (3 GM, 2 IN 1 D), ORAL
     Route: 048
     Dates: start: 20120314
  7. LORAZEPAM [Concomitant]
  8. FUROSEMIDE [Concomitant]
  9. NAPROXEN SODIUM [Concomitant]
  10. TAPENTADOL HYDROCHLORIDE [Concomitant]
  11. MORPHINE SULFATE [Concomitant]

REACTIONS (8)
  - BACK PAIN [None]
  - WEIGHT INCREASED [None]
  - FOLLICULITIS [None]
  - ABSCESS [None]
  - PAIN IN EXTREMITY [None]
  - MUSCULOSKELETAL PAIN [None]
  - BINGE EATING [None]
  - POOR QUALITY SLEEP [None]
